FAERS Safety Report 6371971-1 (Version None)
Quarter: 2009Q3

REPORT INFORMATION
  Report Type: 
  Country: None (occurrence: None)
  Receive Date: 20090917
  Receipt Date: 20090904
  Transmission Date: 20100115
  Serious: Yes (Hospitalization)
  Sender: FDA-Public Use
  Company Number: ADR17352009

PATIENT
  Age: 81 Year
  Sex: Female

DRUGS (6)
  1. CITALOPRAM [Suspect]
     Indication: DEPRESSION
     Dosage: ORAL
     Route: 048
     Dates: start: 20060815, end: 20090929
  2. AMIODARONE 9200 MG, 1/1DAY) [Concomitant]
  3. ASPIRIN (75 MG, 1/1DAY) [Concomitant]
  4. OMEPRAZOLE (20MG, 1/1 DAY) [Concomitant]
  5. SIMVASTATIN 920 MG, 1/1DAY) [Concomitant]
  6. SPIRONOLACTONE (25MG, 1/1DAY) [Concomitant]

REACTIONS (6)
  - ANXIETY [None]
  - BLOOD SODIUM DECREASED [None]
  - CHEST PAIN [None]
  - CORONARY ARTERY DISEASE [None]
  - DEPRESSION [None]
  - PULMONARY OEDEMA [None]
